FAERS Safety Report 23277388 (Version 1)
Quarter: 2023Q4

REPORT INFORMATION
  Report Type: Spontaneous
  Country: US (occurrence: None)
  Receive Date: 20231208
  Receipt Date: 20231208
  Transmission Date: 20240110
  Serious: Yes (Other)
  Sender: FDA-Public Use
  Company Number: 2023A271633

PATIENT
  Age: 37 Year
  Sex: Female

DRUGS (6)
  1. OLAPARIB [Suspect]
     Active Substance: OLAPARIB
     Indication: Glioblastoma
     Route: 048
  2. OLAPARIB [Suspect]
     Active Substance: OLAPARIB
     Indication: Glioblastoma
     Route: 048
  3. OLAPARIB [Suspect]
     Active Substance: OLAPARIB
     Indication: Glioblastoma
     Route: 048
  4. LOMUSTINE [Concomitant]
     Active Substance: LOMUSTINE
     Dosage: 110 MG/M2 ADMINISTERED IN 6-WEEK CYCLES FOR 6 CYCLES
  5. METFORMIN [Concomitant]
     Active Substance: METFORMIN HYDROCHLORIDE
  6. DIGOXIN [Concomitant]
     Active Substance: DIGOXIN

REACTIONS (3)
  - Neutrophil count decreased [Unknown]
  - Platelet count decreased [Unknown]
  - Off label use [Unknown]
